FAERS Safety Report 9098243 (Version 2)
Quarter: 2013Q2

REPORT INFORMATION
  Report Type: Report from Study
  Country: BR (occurrence: BR)
  Receive Date: 20130213
  Receipt Date: 20130419
  Transmission Date: 20140414
  Serious: Yes (Life-Threatening, Hospitalization, Other)
  Sender: FDA-Public Use
  Company Number: PHHY2013BR013419

PATIENT
  Age: 59 Year
  Sex: Female

DRUGS (12)
  1. DIOVAN [Suspect]
     Indication: HYPERTENSION
     Dosage: 1 DF, QD (80 MG IN THE MORNING)
     Route: 048
  2. VERAPAMIL [Concomitant]
     Indication: CEREBROVASCULAR ACCIDENT
     Dosage: 2 DF (80MG), BID
     Route: 048
  3. LOSARTAN [Concomitant]
     Indication: BLOOD PRESSURE
     Dosage: 1 DF, BID (IN THE MORNING AND AT NIGHT)
     Route: 048
  4. SIMVASTATIN [Concomitant]
     Indication: BLOOD CHOLESTEROL
     Dosage: 1 DF, QHS (AT NIGHT)
     Route: 048
  5. SIMVASTATIN [Concomitant]
     Indication: PROPHYLAXIS
  6. RIVOTRIL [Concomitant]
     Indication: DEPRESSION
     Dosage: 1 DF, AT NIGHT
     Route: 048
  7. RIVOTRIL [Concomitant]
     Indication: SLEEP DISORDER
  8. PROCTYL [Concomitant]
     Indication: HAEMORRHOIDS
  9. AEROLIN [Concomitant]
     Indication: BRONCHITIS
  10. FUROSEMIDE [Concomitant]
     Indication: POLYURIA
     Dosage: 1 DF, IN THE MORNING
  11. AAS [Concomitant]
     Indication: ANTICOAGULANT THERAPY
     Dosage: 2 DF, DAILY AT LUNCH
  12. DIPYRONE [Concomitant]
     Indication: PAIN
     Route: 048

REACTIONS (9)
  - Feeling abnormal [Recovering/Resolving]
  - Swelling [Recovering/Resolving]
  - Haemorrhagic stroke [Recovering/Resolving]
  - Movement disorder [Unknown]
  - Haemorrhoids [Recovering/Resolving]
  - Haemorrhage [Recovering/Resolving]
  - Pain [Unknown]
  - Bacterial test positive [Unknown]
  - Blood pressure decreased [Recovered/Resolved]
